FAERS Safety Report 5345101-9 (Version None)
Quarter: 2007Q2

REPORT INFORMATION
  Report Type: 
  Country: None (occurrence: None)
  Receive Date: 20070420
  Receipt Date: 20061009
  Transmission Date: 20071010
  Serious: Yes (Hospitalization, Disabling)
  Sender: FDA-Public Use
  Company Number: 2006UW19543

PATIENT
  Age: 54 Year
  Sex: Male
  Weight: 90.7194 kg

DRUGS (3)
  1. ZESTORETIC [Suspect]
     Indication: HYPERTENSION
  2. VIOXX [Suspect]
     Indication: INFLAMMATION
     Dosage: 25 MG DAILY PAR
     Dates: start: 20001201, end: 20030731
  3. VIOXX [Suspect]
     Indication: MUSCULOSKELETAL PAIN
     Dosage: 25 MG DAILY PAR
     Dates: start: 20001201, end: 20030731

REACTIONS (6)
  - CHEST PAIN [None]
  - CORONARY ARTERY DISEASE [None]
  - DIVERTICULUM [None]
  - HAEMATURIA [None]
  - MYOCARDIAL INFARCTION [None]
  - RENAL FAILURE ACUTE [None]
